FAERS Safety Report 18941584 (Version 2)
Quarter: 2021Q1

REPORT INFORMATION
  Report Type: Report from Study
  Country: US (occurrence: US)
  Receive Date: 20210225
  Receipt Date: 20210226
  Transmission Date: 20210420
  Serious: Yes (Hospitalization)
  Sender: FDA-Public Use
  Company Number: US-GLAXOSMITHKLINE-US2021AMR052649

PATIENT
  Sex: Female

DRUGS (2)
  1. NIRAPARIB [Suspect]
     Active Substance: NIRAPARIB
     Indication: OVARIAN CANCER
     Dosage: 300 MG, QD
     Dates: start: 202008
  2. NIRAPARIB [Suspect]
     Active Substance: NIRAPARIB
     Dosage: 100 MG, QD
     Dates: start: 202010

REACTIONS (7)
  - Insomnia [Unknown]
  - Blood pressure fluctuation [Not Recovered/Not Resolved]
  - Constipation [Unknown]
  - Platelet count decreased [Recovering/Resolving]
  - Neutrophil count increased [Unknown]
  - Blood count abnormal [Unknown]
  - Fatigue [Unknown]
